FAERS Safety Report 25522897 (Version 2)
Quarter: 2025Q3

REPORT INFORMATION
  Report Type: Spontaneous
  Country: CN (occurrence: CN)
  Receive Date: 20250707
  Receipt Date: 20250810
  Transmission Date: 20251020
  Serious: Yes (Life-Threatening, Hospitalization, Disabling)
  Sender: ALEXION PHARMACEUTICALS
  Company Number: CN-ASTRAZENECA-202506CHN024110CN

PATIENT
  Age: 59 Year
  Sex: Male
  Weight: 67 kg

DRUGS (4)
  1. BRILINTA [Suspect]
     Active Substance: TICAGRELOR
     Indication: Myocardial infarction
     Dosage: 90 MILLIGRAM, BID
     Dates: start: 20230131
  2. ALUMINUM [Suspect]
     Active Substance: ALUMINUM
     Indication: Coronary artery disease
     Dosage: 1 DOSAGE FORM, QD
     Dates: start: 20230131
  3. MAGNESIUM [Suspect]
     Active Substance: MAGNESIUM
  4. ASPIRIN [Suspect]
     Active Substance: ASPIRIN

REACTIONS (11)
  - Upper gastrointestinal haemorrhage [Recovering/Resolving]
  - Haemoglobin decreased [Recovering/Resolving]
  - Melaena [Recovering/Resolving]
  - Faecal occult blood positive [Recovering/Resolving]
  - Anaemia [Recovering/Resolving]
  - Nausea [Recovering/Resolving]
  - Vomiting [Recovering/Resolving]
  - Tachypnoea [Recovering/Resolving]
  - Urinary incontinence [Recovering/Resolving]
  - Peripheral swelling [Recovering/Resolving]
  - Anal incontinence [Recovering/Resolving]

NARRATIVE: CASE EVENT DATE: 20250624
